FAERS Safety Report 7251400-6 (Version None)
Quarter: 2011Q1

REPORT INFORMATION
  Report Type: 
  Country: None (occurrence: None)
  Receive Date: 20110128
  Receipt Date: 20110120
  Transmission Date: 20110831
  Serious: Yes (Hospitalization)
  Sender: FDA-Public Use
  Company Number: US-NAPPMUNDI-USA-2010-0049901

PATIENT
  Sex: Male
  Weight: 81.633 kg

DRUGS (2)
  1. OXYCONTIN [Suspect]
     Dosage: 80 MG, TID
     Route: 048
     Dates: start: 20100901
  2. OXYCONTIN [Suspect]
     Indication: OSTEONECROSIS
     Dosage: 80 MG, UNK
     Dates: start: 20101201, end: 20101207

REACTIONS (3)
  - ASTHMA [None]
  - OXYGEN SATURATION DECREASED [None]
  - DYSPNOEA [None]
